FAERS Safety Report 4768205-8 (Version None)
Quarter: 2005Q3

REPORT INFORMATION
  Report Type: 
  Country: None (occurrence: None)
  Receive Date: 20050914
  Receipt Date: 20050706
  Transmission Date: 20060218
  Serious: Yes (Death)
  Sender: FDA-Public Use
  Company Number: HK-ABBOTT-05P-075-0305496-00

PATIENT
  Age: 81 Year
  Sex: Male

DRUGS (10)
  1. CLARITHROMYCIN [Suspect]
     Indication: PNEUMONIA
     Route: 048
     Dates: start: 20010303, end: 20010307
  2. COLCHICINE [Interacting]
     Indication: GOUT
     Route: 048
     Dates: start: 20010303, end: 20010307
  3. ASPIRIN [Concomitant]
     Indication: MYOCARDIAL ISCHAEMIA
  4. ATORVASTATIN CALCIUM [Concomitant]
     Indication: HYPERLIPIDAEMIA
  5. SODIUM BICARBONATE [Concomitant]
     Indication: RENAL FAILURE
  6. FAMOTIDINE [Concomitant]
     Indication: ANTACID THERAPY
  7. ALLOPURINOL [Concomitant]
     Indication: HYPERURICAEMIA
  8. FUROSEMIDE [Concomitant]
     Indication: CARDIAC FAILURE
  9. FUROSEMIDE [Concomitant]
     Indication: RENAL FAILURE
  10. METOPROLOL [Concomitant]
     Indication: HYPERTENSION

REACTIONS (3)
  - DRUG INTERACTION [None]
  - DRUG TOXICITY [None]
  - PANCYTOPENIA [None]
